FAERS Safety Report 16943509 (Version 5)
Quarter: 2020Q1

REPORT INFORMATION
  Report Type: Report from Study
  Country: BR (occurrence: BR)
  Receive Date: 20191022
  Receipt Date: 20200221
  Transmission Date: 20200409
  Serious: Yes (Hospitalization, Other)
  Sender: FDA-Public Use
  Company Number: BR-BRISTOL-MYERS SQUIBB COMPANY-BMS-2019-098978

PATIENT
  Age: 59 Year
  Sex: Female

DRUGS (6)
  1. CODEINE [Concomitant]
     Active Substance: CODEINE
     Indication: PAIN
     Dosage: 30 MILLIGRAM, Q12H
     Route: 048
     Dates: start: 2015
  2. LEFLUNOMIDE. [Concomitant]
     Active Substance: LEFLUNOMIDE
     Indication: PSORIATIC ARTHROPATHY
     Dosage: 20 MILLIGRAM, QD
     Route: 048
     Dates: start: 2014, end: 20190528
  3. GABAPENTIN. [Concomitant]
     Active Substance: GABAPENTIN
     Indication: PAIN
     Dosage: 300 MILLIGRAM, Q8H
     Route: 048
     Dates: start: 2015
  4. METHOTREXATE. [Concomitant]
     Active Substance: METHOTREXATE
     Indication: PSORIATIC ARTHROPATHY
     Dosage: 20 MILLIGRAM, QWK
     Route: 048
     Dates: start: 2014, end: 20190528
  5. FOLIC ACID. [Concomitant]
     Active Substance: FOLIC ACID
     Indication: PRODUCT USED FOR UNKNOWN INDICATION
     Dosage: 5 MILLIGRAM, QWK
     Route: 048
     Dates: start: 2014, end: 20190528
  6. ABATACEPT [Suspect]
     Active Substance: ABATACEPT
     Indication: PSORIATIC ARTHROPATHY
     Dosage: UNK, QMO
     Route: 042
     Dates: start: 201508, end: 20190528

REACTIONS (3)
  - Overweight [Unknown]
  - Pain [Unknown]
  - Gallbladder disorder [Recovered/Resolved]

NARRATIVE: CASE EVENT DATE: 20190725
